FAERS Safety Report 24347134 (Version 1)
Quarter: 2024Q3

REPORT INFORMATION
  Report Type: Spontaneous
  Country: NL (occurrence: NL)
  Receive Date: 20240921
  Receipt Date: 20240921
  Transmission Date: 20241016
  Serious: Yes (Death)
  Sender: AMGEN
  Company Number: NL-AMGEN-NLDSP2024184016

PATIENT

DRUGS (5)
  1. FILGRASTIM [Suspect]
     Active Substance: FILGRASTIM
     Indication: Allogenic stem cell transplantation
     Dosage: 5 MICROGRAM/KILOGRAM, QD ON DAY +5 UNTIL NEUTROPHIL RECOVERY
     Route: 065
  2. MYCOPHENOLIC ACID [Concomitant]
     Active Substance: MYCOPHENOLIC ACID
     Indication: Prophylaxis
     Dosage: 5 MILLIGRAM/KILOGRAM, TID (BETWEEN DAY +5 AND +28)
     Route: 065
  3. TACROLIMUS [Concomitant]
     Active Substance: TACROLIMUS
     Indication: Prophylaxis
     Dosage: 0.04 MILLIGRAM/KILOGRAM, BID (ON DAY +5)
     Route: 065
  4. CYCLOPHOSPHAMIDE [Concomitant]
     Active Substance: CYCLOPHOSPHAMIDE
     Indication: Prophylaxis
     Dosage: 40 MILLIGRAM/KILOGRAM, BID (ADMINISTERED 72 AND 96 HOURS)
  5. FLUDARABINE [Concomitant]
     Active Substance: FLUDARABINE PHOSPHATE
     Indication: Prophylaxis
     Dosage: UNK

REACTIONS (1)
  - Acute graft versus host disease [Fatal]
